FAERS Safety Report 21795448 (Version 1)
Quarter: 2022Q4

REPORT INFORMATION
  Report Type: 
  Country: None (occurrence: None)
  Receive Date: 20221229
  Receipt Date: 20221229
  Transmission Date: 20230112
  Serious: Yes (Hospitalization, Other)
  Sender: FDA-Public Use
  Company Number: None

PATIENT
  Age: 38 Year
  Sex: Male

DRUGS (1)
  1. DICLOFENAC SODIUM [Suspect]
     Active Substance: DICLOFENAC SODIUM

REACTIONS (11)
  - Pain [Unknown]
  - Skin discolouration [Unknown]
  - Joint range of motion decreased [Unknown]
  - Pain in extremity [Unknown]
  - Hypothermia [Unknown]
  - Radial pulse abnormal [Unknown]
  - Pulse absent [Unknown]
  - Paraesthesia [Unknown]
  - Peripheral ischaemia [Unknown]
  - Limb amputation [Unknown]
  - Off label use [Unknown]
